FAERS Safety Report 14109509 (Version 3)
Quarter: 2018Q2

REPORT INFORMATION
  Report Type: Report from Study
  Country: DE (occurrence: DE)
  Receive Date: 20171020
  Receipt Date: 20180524
  Transmission Date: 20180711
  Serious: Yes (Hospitalization)
  Sender: FDA-Public Use
  Company Number: DE-ROCHE-2010410

PATIENT
  Age: 79 Year
  Sex: Female
  Weight: 64 kg

DRUGS (6)
  1. XELODA [Suspect]
     Active Substance: CAPECITABINE
     Indication: BREAST CANCER
     Dosage: FOR 2 WEEKS PER CYCLE
     Route: 048
     Dates: start: 20110722, end: 20120329
  2. TOREM [Concomitant]
     Active Substance: TORSEMIDE
     Dosage: CUMULATIVE DOSE TO FIRST REACTION : 16090 MG
     Route: 048
     Dates: start: 20080701
  3. RAMIPRIL. [Concomitant]
     Active Substance: RAMIPRIL
     Dosage: CUMULATIVE DOSE TO FIRST REACTION : 16090 MG
     Route: 048
     Dates: start: 20080701
  4. XELODA [Suspect]
     Active Substance: CAPECITABINE
     Dosage: FOR 2 WEEKS PER CYCLE
     Route: 048
     Dates: start: 20120419, end: 20120621
  5. BEVACIZUMAB. [Suspect]
     Active Substance: BEVACIZUMAB
     Indication: BREAST CANCER
     Dosage: LAST DOSE PRIOR TO THE EVENT: 21/JUN/2012
     Route: 042
     Dates: start: 20110722, end: 20120621
  6. DELIX (GERMANY) [Concomitant]
     Dosage: CUMULATIVE DOSE TO FIRST REACTION : 4930
     Route: 048
     Dates: start: 20110722

REACTIONS (1)
  - Hypertensive crisis [Recovered/Resolved]

NARRATIVE: CASE EVENT DATE: 20121125
